FAERS Safety Report 6250106-X (Version None)
Quarter: 2009Q2

REPORT INFORMATION
  Report Type: 
  Country: None (occurrence: None)
  Receive Date: 20090626
  Receipt Date: 20090611
  Transmission Date: 20091009
  Serious: Yes (Hospitalization, Other)
  Sender: FDA-Public Use
  Company Number: 2009S1010455

PATIENT
  Age: 55 Year
  Sex: Male
  Weight: 96.6162 kg

DRUGS (2)
  1. LEVETIRACETAM [Suspect]
     Indication: CONVULSION
     Dosage: 1000 MG; TWICE A DAY; ORAL
     Route: 048
     Dates: start: 20081101, end: 20090329
  2. DEPAKOTE ER [Concomitant]

REACTIONS (6)
  - CONVULSION [None]
  - DYSARTHRIA [None]
  - EYE MOVEMENT DISORDER [None]
  - HYPOAESTHESIA ORAL [None]
  - PARAESTHESIA ORAL [None]
  - SEDATION [None]
